FAERS Safety Report 17245861 (Version 1)
Quarter: 2020Q1

REPORT INFORMATION
  Report Type: Spontaneous
  Country: US (occurrence: US)
  Receive Date: 20200108
  Receipt Date: 20200108
  Transmission Date: 20200409
  Serious: Yes (Other)
  Sender: FDA-Public Use
  Company Number: NVSC2020US001963

PATIENT
  Age: 30 Year
  Sex: Male

DRUGS (6)
  1. MIRTAZAPINE. [Suspect]
     Active Substance: MIRTAZAPINE
     Indication: SCHIZOAFFECTIVE DISORDER
     Dosage: 60 MG, QD
     Route: 065
  2. PROPRANOLOL [Suspect]
     Active Substance: PROPRANOLOL HYDROCHLORIDE
     Indication: SCHIZOAFFECTIVE DISORDER
     Dosage: 20 MG, QD
     Route: 065
  3. OLANZAPINE. [Suspect]
     Active Substance: OLANZAPINE
     Dosage: 25 MG, QD
     Route: 065
  4. OLANZAPINE. [Suspect]
     Active Substance: OLANZAPINE
     Indication: SCHIZOAFFECTIVE DISORDER
     Dosage: 30 MG, QD
     Route: 065
  5. MELATONIN [Suspect]
     Active Substance: MELATONIN
     Indication: SCHIZOAFFECTIVE DISORDER
     Dosage: 3 MG, QD
     Route: 065
  6. N-ACETYLCYSTEINE [Suspect]
     Active Substance: ACETYLCYSTEINE
     Indication: SCHIZOAFFECTIVE DISORDER
     Dosage: 2400 MG, QD
     Route: 065

REACTIONS (1)
  - Tardive dyskinesia [Unknown]
